FAERS Safety Report 9864480 (Version 2)
Quarter: 2014Q1

REPORT INFORMATION
  Report Type: Spontaneous
  Country: TR (occurrence: TR)
  Receive Date: 20140203
  Receipt Date: 20140203
  Transmission Date: 20141002
  Serious: Yes (Other)
  Sender: FDA-Public Use
  Company Number: TR-GILEAD-2014-0092679

PATIENT
  Age: 67 Year
  Sex: Male

DRUGS (1)
  1. VIREAD [Suspect]
     Indication: PRODUCT USED FOR UNKNOWN INDICATION
     Route: 065

REACTIONS (2)
  - Hepatic failure [Unknown]
  - Renal failure [Unknown]
